FAERS Safety Report 10168787 (Version 1)
Quarter: 2014Q2

REPORT INFORMATION
  Report Type: Spontaneous
  Country: US (occurrence: None)
  Receive Date: 20140512
  Receipt Date: 20140512
  Transmission Date: 20141212
  Serious: Yes (Other)
  Sender: FDA-Public Use
  Company Number: None

PATIENT
  Age: 23 Year
  Sex: Female
  Weight: 69.3 kg

DRUGS (1)
  1. MARCAINE SPINAL [Suspect]
     Indication: EPIDURAL ANALGESIA
     Route: 008
     Dates: start: 20140509, end: 20140509

REACTIONS (1)
  - Drug ineffective [None]
